FAERS Safety Report 6782856-0 (Version None)
Quarter: 2010Q2

REPORT INFORMATION
  Report Type: 
  Country: None (occurrence: None)
  Receive Date: 20100617
  Receipt Date: 20091014
  Transmission Date: 20101027
  Serious: Yes (Disabling)
  Sender: FDA-Public Use
  Company Number: APP200900569

PATIENT
  Age: 37 Year
  Sex: Female

DRUGS (3)
  1. SENSORCAINE [Suspect]
     Indication: MUSCULOSKELETAL PAIN
     Dosage: 270 ML INTRA-ARTICULAR
     Route: 014
     Dates: start: 20041129
  2. BUPIVACAINE HYDROCHLORIDE AND EPINEPHRINE [Suspect]
     Indication: LOCAL ANAESTHESIA
     Dosage: 20 ML, LOCAL INFLTRATION
     Dates: start: 20041129
  3. ANCEF [Concomitant]

REACTIONS (15)
  - CHONDROLYSIS [None]
  - EXOSTOSIS [None]
  - FRUSTRATION [None]
  - GRANULOMA [None]
  - HYPOAESTHESIA [None]
  - INJURY [None]
  - JOINT CREPITATION [None]
  - JOINT DESTRUCTION [None]
  - MOTOR DYSFUNCTION [None]
  - NEUROPATHY PERIPHERAL [None]
  - PROCEDURAL COMPLICATION [None]
  - SENSORY DISTURBANCE [None]
  - SOFT TISSUE DISORDER [None]
  - SUTURE RELATED COMPLICATION [None]
  - SWELLING [None]
